FAERS Safety Report 9924948 (Version 2)
Quarter: 2014Q3

REPORT INFORMATION
  Report Type: Spontaneous
  Country: CN (occurrence: None)
  Receive Date: 20140221
  Receipt Date: 20140909
  Transmission Date: 20150326
  Serious: Yes (Hospitalization, Other)
  Sender: FDA-Public Use
  Company Number: CN-013884

PATIENT
  Age: 63 Year
  Sex: Male
  Weight: 70.6 kg

DRUGS (1)
  1. DEGARELIX [Suspect]
     Active Substance: DEGARELIX
     Indication: PROSTATE CANCER
     Route: 058
     Dates: start: 20131111, end: 20131111

REACTIONS (3)
  - Renal failure acute [None]
  - Hyperkalaemia [None]
  - Dialysis [None]

NARRATIVE: CASE EVENT DATE: 20131118
